FAERS Safety Report 24566457 (Version 1)
Quarter: 2024Q4

REPORT INFORMATION
  Report Type: Spontaneous
  Country: CN (occurrence: None)
  Receive Date: 20241030
  Receipt Date: 20241030
  Transmission Date: 20250114
  Serious: Yes (Death, Life-Threatening, Hospitalization, Other)
  Sender: HQ SPECIALTY
  Company Number: CN-HQ-20240069

PATIENT
  Age: 13 Day
  Sex: Male
  Weight: 3.6 kg

DRUGS (1)
  1. LINEZOLID [Suspect]
     Active Substance: LINEZOLID
     Indication: Staphylococcal infection
     Route: 040

REACTIONS (3)
  - Lactic acidosis [Fatal]
  - Respiratory arrest [Fatal]
  - Cardiac arrest [Fatal]
